FAERS Safety Report 21609559 (Version 1)
Quarter: 2022Q4

REPORT INFORMATION
  Report Type: Spontaneous
  Country: US (occurrence: US)
  Receive Date: 20221117
  Receipt Date: 20221117
  Transmission Date: 20230112
  Serious: Yes (Other)
  Sender: FDA-Public Use
  Company Number: US-002147023-NVSC2022US255520

PATIENT
  Sex: Female

DRUGS (3)
  1. CARBOPLATIN [Suspect]
     Active Substance: CARBOPLATIN
     Indication: HER2 positive breast cancer
     Dosage: UNK (AREA UNDER THE CURVE, 6 MG/ML/MIN) FOR 3WEEKS
     Route: 065
  2. DOCETAXEL [Suspect]
     Active Substance: DOCETAXEL
     Indication: HER2 positive breast cancer
     Dosage: 75 MG/M2, CYCLIC (GIVEN EVERY 3 WEEKS FOR 6 CYCLES)
     Route: 065
  3. TRASTUZUMAB [Suspect]
     Active Substance: TRASTUZUMAB
     Indication: HER2 positive breast cancer
     Dosage: UNK, CYCLIC (GIVEN EVERY 3 WEEKS FOR 6 CYCLES )
     Route: 065

REACTIONS (2)
  - Hepatitis [Unknown]
  - Product use in unapproved indication [Unknown]
